FAERS Safety Report 17987076 (Version 1)
Quarter: 2020Q3

REPORT INFORMATION
  Report Type: Spontaneous
  Country: US (occurrence: US)
  Receive Date: 20200707
  Receipt Date: 20200707
  Transmission Date: 20201103
  Serious: No
  Sender: FDA-Public Use
  Company Number: US-SUN PHARMACEUTICAL INDUSTRIES LTD-2020R1-234263

PATIENT
  Age: 40 Year
  Sex: Male

DRUGS (1)
  1. TESTOSTERONE. [Suspect]
     Active Substance: TESTOSTERONE
     Indication: BLOOD TESTOSTERONE DECREASED
     Dosage: 1.5 MILLILITER, WEEKLY
     Route: 065

REACTIONS (4)
  - Illness [Not Recovered/Not Resolved]
  - Product physical issue [Unknown]
  - Poor quality product administered [Unknown]
  - Fatigue [Unknown]

NARRATIVE: CASE EVENT DATE: 20191229
